FAERS Safety Report 9988835 (Version 2)
Quarter: 2014Q4

REPORT INFORMATION
  Report Type: Spontaneous
  Country: JP (occurrence: None)
  Receive Date: 20131022
  Receipt Date: 20141106
  Transmission Date: 20150529
  Serious: Yes (Hospitalization, Other)
  Sender: FDA-Public Use
  Company Number: VAL_01193_2012

PATIENT
  Age: 87 Year
  Sex: Female
  Weight: 34 kg

DRUGS (11)
  1. BONOTEO [Concomitant]
     Active Substance: MINODRONIC ACID
  2. ASPIRIN. [Concomitant]
     Active Substance: ASPIRIN
  3. MINODRONIC ACID [Concomitant]
     Active Substance: MINODRONIC ACID
  4. SEVEN EP [Concomitant]
  5. CILOSTAZOL. [Concomitant]
     Active Substance: CILOSTAZOL
  6. LANSOPRAZOLE. [Concomitant]
     Active Substance: LANSOPRAZOLE
  7. PARLODEL [Suspect]
     Active Substance: BROMOCRIPTINE MESYLATE
     Indication: PARKINSON^S DISEASE
     Route: 048
     Dates: start: 20101230, end: 20121109
  8. MENESIT [Concomitant]
     Active Substance: CARBIDOPA\LEVODOPA
  9. TAKEPRON [Concomitant]
     Active Substance: LANSOPRAZOLE
  10. PLETAAL [Concomitant]
     Active Substance: CILOSTAZOL
  11. LEVODOPA [Concomitant]
     Active Substance: LEVODOPA

REACTIONS (14)
  - Loss of consciousness [None]
  - Cardiomegaly [None]
  - Mitral valve incompetence [None]
  - Cogwheel rigidity [None]
  - Extremity contracture [None]
  - Blood pressure decreased [None]
  - Sudden onset of sleep [None]
  - Hypotension [None]
  - Tachycardia [None]
  - Aortic valve incompetence [None]
  - Pulmonary valve incompetence [None]
  - Electrocardiogram ST segment elevation [None]
  - Tricuspid valve incompetence [None]
  - Electrocardiogram T wave inversion [None]

NARRATIVE: CASE EVENT DATE: 201112
